FAERS Safety Report 9118317 (Version 1)
Quarter: 2013Q1

REPORT INFORMATION
  Report Type: Spontaneous
  Country: US (occurrence: None)
  Receive Date: 20130221
  Receipt Date: 20130221
  Transmission Date: 20140127
  Serious: Yes (Other)
  Sender: FDA-Public Use
  Company Number: None

PATIENT
  Age: 38 Year
  Sex: Female
  Weight: 117.94 kg

DRUGS (1)
  1. ENBREL [Suspect]
     Indication: RHEUMATOID ARTHRITIS
     Dates: start: 20101001, end: 20101225

REACTIONS (15)
  - Rheumatoid arthritis [None]
  - Malaise [None]
  - Psychogenic seizure [None]
  - Movement disorder [None]
  - Amnesia [None]
  - Dysphemia [None]
  - Dysarthria [None]
  - Head banging [None]
  - Dyskinesia [None]
  - Sensory disturbance [None]
  - Disturbance in attention [None]
  - Fatigue [None]
  - Fall [None]
  - Cognitive disorder [None]
  - Pain of skin [None]
